FAERS Safety Report 8242159-4 (Version None)
Quarter: 2012Q1

REPORT INFORMATION
  Report Type: 
  Country: None (occurrence: None)
  Receive Date: 20120314
  Receipt Date: 20110802
  Transmission Date: 20120608
  Serious: No
  Sender: FDA-Public Use
  Company Number: PHEH2011US00629

PATIENT
  Age: 26 Year
  Sex: Male
  Weight: 149.2 kg

DRUGS (1)
  1. FANAPT [Suspect]
     Indication: SCHIZOPHRENIA
     Dosage: 4 MG, BID, ORAL 2 MG, BID, ORAL
     Route: 048

REACTIONS (1)
  - IRRITABILITY [None]
